FAERS Safety Report 8523559-1 (Version None)
Quarter: 2012Q3

REPORT INFORMATION
  Report Type: 
  Country: None (occurrence: None)
  Receive Date: 20120716
  Receipt Date: 20120716
  Transmission Date: 20120928
  Serious: Yes (Disabling)
  Sender: FDA-Public Use
  Company Number: None

PATIENT
  Age: 59 Year
  Sex: Male
  Weight: 68.0396 kg

DRUGS (2)
  1. LEVOFLOXACIN [Suspect]
     Indication: SKIN BACTERIAL INFECTION
     Dosage: 500MG DAILY 7-DAYS PO
     Route: 048
     Dates: start: 20120126, end: 20120202
  2. LEVOFLOXACIN [Suspect]
     Indication: ARTHRITIS VIRAL
     Dosage: 500MG DAILY 7-DAYS PO
     Route: 048
     Dates: start: 20120126, end: 20120202

REACTIONS (10)
  - VERTIGO [None]
  - BIOPSY MUSCLE ABNORMAL [None]
  - NERVE INJURY [None]
  - ARTHRALGIA [None]
  - BLEPHAROSPASM [None]
  - JOINT SWELLING [None]
  - MUSCLE TWITCHING [None]
  - MUSCLE CONTRACTIONS INVOLUNTARY [None]
  - TENDON DISORDER [None]
  - TOXICITY TO VARIOUS AGENTS [None]
